FAERS Safety Report 19367793 (Version 1)
Quarter: 2021Q2

REPORT INFORMATION
  Report Type: Spontaneous
  Country: US (occurrence: US)
  Receive Date: 20210603
  Receipt Date: 20210603
  Transmission Date: 20210717
  Serious: Yes (Hospitalization)
  Sender: FDA-Public Use
  Company Number: US-VYERA PHARMACEUTICALS, LLC-2021VYE00016

PATIENT
  Age: 62 Year
  Sex: Male
  Weight: 124.74 kg

DRUGS (25)
  1. LOVENOX [Concomitant]
     Active Substance: ENOXAPARIN SODIUM
  2. ZOFRAN [Concomitant]
     Active Substance: ONDANSETRON HYDROCHLORIDE
  3. COMPAZINE [Concomitant]
     Active Substance: PROCHLORPERAZINE MALEATE
  4. BACTRIM [Concomitant]
     Active Substance: SULFAMETHOXAZOLE\TRIMETHOPRIM
  5. REGLAN [Concomitant]
     Active Substance: METOCLOPRAMIDE HYDROCHLORIDE
  6. DARAPRIM [Suspect]
     Active Substance: PYRIMETHAMINE
     Indication: CEREBRAL TOXOPLASMOSIS
     Dosage: 75 MG, 1X/DAY
     Route: 048
     Dates: start: 20201217, end: 202105
  7. ATIVAN [Concomitant]
     Active Substance: LORAZEPAM
  8. NYSTATIN. [Concomitant]
     Active Substance: NYSTATIN
  9. BENADRYL [Concomitant]
     Active Substance: DIPHENHYDRAMINE HYDROCHLORIDE
  10. SULFADIAZINE. [Concomitant]
     Active Substance: SULFADIAZINE
  11. DEMEROL [Concomitant]
     Active Substance: MEPERIDINE HYDROCHLORIDE
  12. LOPRESSOR [Concomitant]
     Active Substance: METOPROLOL TARTRATE
  13. GLUCAGON. [Concomitant]
     Active Substance: GLUCAGON
  14. DARAPRIM [Suspect]
     Active Substance: PYRIMETHAMINE
     Indication: HIV INFECTION
  15. COLACE [Concomitant]
     Active Substance: DOCUSATE SODIUM
  16. VIBRAMYCIN [Concomitant]
     Active Substance: DOXYCYCLINE
  17. FLORINEF ACETATE [Concomitant]
     Active Substance: FLUDROCORTISONE ACETATE
  18. APRESOLINE HYDROCHLORIDE [Concomitant]
     Active Substance: HYDRALAZINE HYDROCHLORIDE
  19. HUMALOG [Concomitant]
     Active Substance: INSULIN LISPRO
  20. PROTONIX [Concomitant]
     Active Substance: PANTOPRAZOLE SODIUM
  21. CARDIZEM [Concomitant]
     Active Substance: DILTIAZEM HYDROCHLORIDE
  22. DILAUDID [Concomitant]
     Active Substance: HYDROMORPHONE HYDROCHLORIDE
  23. LABETALOL [Concomitant]
     Active Substance: LABETALOL\LABETALOL HYDROCHLORIDE
  24. LEUCOVORIN. [Concomitant]
     Active Substance: LEUCOVORIN
  25. SINGULAIR [Concomitant]
     Active Substance: MONTELUKAST SODIUM

REACTIONS (1)
  - HIV infection [Not Recovered/Not Resolved]

NARRATIVE: CASE EVENT DATE: 20210503
